FAERS Safety Report 15326726 (Version 1)
Quarter: 2018Q3

REPORT INFORMATION
  Report Type: Spontaneous
  Country: US (occurrence: US)
  Receive Date: 20180828
  Receipt Date: 20180828
  Transmission Date: 20181010
  Serious: No
  Sender: FDA-Public Use
  Company Number: US-AMAG PHARMACEUTICALS, INC.-AMAG201803010

PATIENT
  Age: 71 Year
  Sex: Female
  Weight: 56.69 kg

DRUGS (3)
  1. INTRAROSA [Suspect]
     Active Substance: PRASTERONE
     Indication: DYSPAREUNIA
     Dosage: 6.5 MG, QHS
     Route: 067
     Dates: start: 20180416
  2. ATENOLOL. [Concomitant]
     Active Substance: ATENOLOL
     Indication: MENOPAUSE
     Dosage: 25 MG, QD
     Route: 048
  3. LEVOTHYROXINE. [Concomitant]
     Active Substance: LEVOTHYROXINE
     Indication: WEIGHT INCREASED
     Dosage: UNK, QD
     Route: 048

REACTIONS (2)
  - Drug ineffective [Unknown]
  - Urinary tract infection [Recovered/Resolved]

NARRATIVE: CASE EVENT DATE: 2018
